FAERS Safety Report 8955105 (Version 1)
Quarter: 2012Q4

REPORT INFORMATION
  Report Type: 
  Country: US (occurrence: US)
  Receive Date: 20121207
  Receipt Date: 20121207
  Transmission Date: 20130627
  Serious: No
  Sender: FDA-Public Use
  Company Number: US-009507513-1211USA001587

PATIENT
  Sex: Male

DRUGS (2)
  1. ZEGERID OTC CAPSULES [Suspect]
     Indication: PRODUCT USED FOR UNKNOWN INDICATION
     Dosage: 20 mg, tid
     Route: 048
     Dates: start: 2012
  2. ZEGERID OTC CAPSULES [Suspect]
     Indication: MEDICAL OBSERVATION
     Dosage: 20 mg, qd
     Route: 048
     Dates: start: 2012

REACTIONS (3)
  - Rash [Unknown]
  - Overdose [Unknown]
  - Incorrect drug administration duration [Unknown]
